FAERS Safety Report 14692206 (Version 2)
Quarter: 2018Q2

REPORT INFORMATION
  Report Type: Report from Study
  Country: IT (occurrence: IT)
  Receive Date: 20180329
  Receipt Date: 20180418
  Transmission Date: 20180711
  Serious: Yes (Hospitalization, Other)
  Sender: FDA-Public Use
  Company Number: IT-ROCHE-2098252

PATIENT
  Age: 59 Year
  Sex: Male

DRUGS (13)
  1. ARIXTRA [Concomitant]
     Active Substance: FONDAPARINUX SODIUM
     Route: 065
  2. OXIBUTININA [Concomitant]
     Active Substance: OXYBUTYNIN
     Route: 048
     Dates: start: 2015
  3. BACLOFEN. [Concomitant]
     Active Substance: BACLOFEN
     Indication: MUSCLE SPASTICITY
     Route: 048
     Dates: start: 2011
  4. DULOXETINE. [Concomitant]
     Active Substance: DULOXETINE
     Route: 065
  5. OCRELIZUMAB. [Suspect]
     Active Substance: OCRELIZUMAB
     Indication: PRIMARY PROGRESSIVE MULTIPLE SCLEROSIS
     Route: 042
     Dates: start: 20171207
  6. HUMALOG [Concomitant]
     Active Substance: INSULIN LISPRO
     Indication: TYPE 2 DIABETES MELLITUS
     Route: 058
     Dates: start: 20180109
  7. ROCEFIN [Concomitant]
     Active Substance: CEFTRIAXONE SODIUM
     Route: 065
  8. DIDROGYL [Concomitant]
     Active Substance: CALCIFEDIOL
     Indication: VITAMIN D DEFICIENCY
     Route: 048
     Dates: start: 2016
  9. OKI [Concomitant]
     Active Substance: KETOPROFEN LYSINE
     Route: 065
  10. LAEVOLAC [Concomitant]
     Active Substance: LACTULOSE
  11. CIPROXIN [Concomitant]
     Active Substance: CIPROFLOXACIN
  12. KCL [Concomitant]
     Active Substance: POTASSIUM CHLORIDE
  13. PRAMIPEXOLE. [Concomitant]
     Active Substance: PRAMIPEXOLE
     Route: 048
     Dates: start: 2011

REACTIONS (4)
  - Troponin increased [Unknown]
  - Subileus [Unknown]
  - Chest pain [Unknown]
  - Cholelithiasis [Unknown]

NARRATIVE: CASE EVENT DATE: 20180108
